FAERS Safety Report 19320536 (Version 1)
Quarter: 2021Q2

REPORT INFORMATION
  Report Type: Spontaneous
  Country: US (occurrence: US)
  Receive Date: 20210528
  Receipt Date: 20210528
  Transmission Date: 20210717
  Serious: Yes (Death)
  Sender: FDA-Public Use
  Company Number: None

PATIENT
  Age: 75 Year
  Sex: Male
  Weight: 88.45 kg

DRUGS (1)
  1. REMDESIVIR (REMDESIVIR 100MG/VIAL INJ) [Suspect]
     Active Substance: REMDESIVIR
     Dates: start: 20200517, end: 20200521

REACTIONS (2)
  - Acute respiratory failure [None]
  - Staphylococcal infection [None]

NARRATIVE: CASE EVENT DATE: 20200524
